FAERS Safety Report 5455726-8 (Version None)
Quarter: 2007Q3

REPORT INFORMATION
  Report Type: 
  Country: None (occurrence: None)
  Receive Date: 20070918
  Receipt Date: 20070905
  Transmission Date: 20080115
  Serious: Yes (Death)
  Sender: FDA-Public Use
  Company Number: GB-GENENTECH-246618

PATIENT
  Age: 87 Year
  Sex: Female

DRUGS (1)
  1. AVASTIN [Suspect]
     Indication: MACULAR DEGENERATION
     Dosage: 1.25 MG, UNK
     Route: 031
     Dates: start: 20060901

REACTIONS (1)
  - MYOCARDIAL INFARCTION [None]
